FAERS Safety Report 8541460-4 (Version None)
Quarter: 2012Q3

REPORT INFORMATION
  Report Type: 
  Country: None (occurrence: None)
  Receive Date: 20120726
  Receipt Date: 20120724
  Transmission Date: 20120928
  Serious: Yes (Hospitalization)
  Sender: FDA-Public Use
  Company Number: CH-BAYER-2012-073736

PATIENT
  Age: 82 Year
  Sex: Male

DRUGS (15)
  1. ALLOPURINOL [Suspect]
     Indication: GOUT
     Dosage: 300 MG, QD
     Route: 048
     Dates: end: 20120501
  2. IRBESARTAN [Concomitant]
     Dosage: 150 MG, QD
     Route: 048
  3. PRIORIN N [Concomitant]
     Dosage: UNK
     Route: 048
  4. EZETIMIBE [Suspect]
     Indication: LIPOPROTEIN (A) ABNORMAL
     Dosage: UNK
     Route: 048
     Dates: end: 20120401
  5. INDAPAMIDE [Suspect]
     Indication: HYPERTENSION
     Dosage: 1.5 MG, QD
     Route: 048
  6. TRANSIPEG [MACROGOL] [Concomitant]
     Dosage: UNK
     Route: 048
  7. POTASSIUM CHLORIDE [Concomitant]
     Dosage: 10 MMOL, BID
     Route: 048
  8. ASPIRIN [Interacting]
     Dosage: 100 MG, QD
     Route: 048
  9. SPIRIVA [Concomitant]
     Dosage: 18 ?G, QD
     Route: 045
  10. AVODART [Concomitant]
     Dosage: 0.5 MG, QD
     Route: 048
  11. SINTROM [Interacting]
     Dosage: UNK
     Route: 048
     Dates: end: 20120429
  12. VOLTAREN [Interacting]
     Dosage: 50 MG, TID
     Route: 048
     Dates: end: 20120501
  13. CRATAEGUS [Concomitant]
     Dosage: 80 MG, BID
     Route: 048
  14. ACETYLCYSTEINE [Concomitant]
     Dosage: 600 MG, QD
     Route: 048
  15. NEBIVOLOL HCL [Suspect]
     Indication: HYPERTENSION
     Dosage: 1.25 MG, QD
     Route: 048

REACTIONS (7)
  - HAEMATOCHEZIA [None]
  - GASTROINTESTINAL HAEMORRHAGE [None]
  - HAEMORRHAGIC ANAEMIA [None]
  - DIZZINESS [None]
  - MYOCARDIAL INFARCTION [None]
  - GASTRIC ULCER [None]
  - RENAL FAILURE ACUTE [None]
